FAERS Safety Report 11312328 (Version 1)
Quarter: 2015Q3

REPORT INFORMATION
  Report Type: Spontaneous
  Country: US (occurrence: None)
  Receive Date: 20150724
  Receipt Date: 20150724
  Transmission Date: 20151125
  Serious: No
  Sender: FDA-Public Use
  Company Number: None

PATIENT

DRUGS (1)
  1. THROMBIN [Suspect]
     Active Substance: THROMBIN
     Indication: HAEMOSTASIS
     Dosage: 5000 UNIT BOXES STAT TOPICAL FOR HEMOSTATIS
     Route: 061
     Dates: start: 20150723, end: 20150723

REACTIONS (2)
  - Product quality issue [None]
  - Product reconstitution issue [None]

NARRATIVE: CASE EVENT DATE: 20150723
